FAERS Safety Report 7925627-1 (Version None)
Quarter: 2011Q4

REPORT INFORMATION
  Report Type: 
  Country: None (occurrence: None)
  Receive Date: 20111118
  Receipt Date: 20110408
  Transmission Date: 20120403
  Serious: No
  Sender: FDA-Public Use
  Company Number: US-AMGEN-USASP2011013428

PATIENT
  Age: 35 Year
  Sex: Male

DRUGS (2)
  1. ENBREL [Suspect]
     Indication: PSORIATIC ARTHROPATHY
     Dosage: 50 MG, 2 TIMES/WK
     Dates: start: 20050206
  2. ENBREL [Suspect]
     Indication: PSORIASIS

REACTIONS (8)
  - IMPAIRED HEALING [None]
  - ACNE [None]
  - NASOPHARYNGITIS [None]
  - PSORIASIS [None]
  - INFECTION [None]
  - DRUG INEFFECTIVE [None]
  - PSORIATIC ARTHROPATHY [None]
  - LACERATION [None]
